FAERS Safety Report 12912121 (Version 4)
Quarter: 2017Q1

REPORT INFORMATION
  Report Type: Report from Study
  Country: FR (occurrence: FR)
  Receive Date: 20161104
  Receipt Date: 20170201
  Transmission Date: 20170428
  Serious: Yes (Death)
  Sender: FDA-Public Use
  Company Number: FR-VIFOR (INTERNATIONAL) INC.-VIT-2016-07050

PATIENT
  Age: 63 Year
  Sex: Female
  Weight: 88.5 kg

DRUGS (33)
  1. COUMADINE [Concomitant]
     Active Substance: WARFARIN SODIUM
     Dates: start: 20160613, end: 20160629
  2. FER MYLAN [Concomitant]
     Dates: start: 20160307, end: 20160725
  3. ARANESP [Concomitant]
     Active Substance: DARBEPOETIN ALFA
     Dates: start: 20160811, end: 20160913
  4. COUMADINE [Concomitant]
     Active Substance: WARFARIN SODIUM
     Indication: CARDIOVASCULAR DISORDER
     Dates: start: 20151209, end: 20160304
  5. COUMADINE [Concomitant]
     Active Substance: WARFARIN SODIUM
     Dates: start: 20150418, end: 20160420
  6. COUMADINE [Concomitant]
     Active Substance: WARFARIN SODIUM
     Dates: start: 20160309, end: 20160309
  7. COUMADINE [Concomitant]
     Active Substance: WARFARIN SODIUM
     Dates: start: 20160309, end: 20160330
  8. VELPHORO [Suspect]
     Active Substance: FERRIC OXYHYDROXIDE
     Indication: BLOOD PHOSPHORUS ABNORMAL
     Dates: start: 20160720
  9. ARANESP [Concomitant]
     Active Substance: DARBEPOETIN ALFA
     Dates: start: 20160509, end: 20160714
  10. ARANESP [Concomitant]
     Active Substance: DARBEPOETIN ALFA
     Dates: start: 20161003, end: 20161007
  11. COUMADINE [Concomitant]
     Active Substance: WARFARIN SODIUM
     Dates: start: 20160514, end: 20160523
  12. COUMADINE [Concomitant]
     Active Substance: WARFARIN SODIUM
     Dates: start: 20160629, end: 20160708
  13. ORGARAN [Concomitant]
     Active Substance: DANAPAROID SODIUM
     Indication: CARDIOVASCULAR DISORDER
     Dates: start: 20160307, end: 20160310
  14. ARANESP [Concomitant]
     Active Substance: DARBEPOETIN ALFA
     Indication: ANAEMIA
     Dates: start: 20160307, end: 20160509
  15. COUMADINE [Concomitant]
     Active Substance: WARFARIN SODIUM
     Dates: start: 20160420, end: 20160514
  16. COUMADINE [Concomitant]
     Active Substance: WARFARIN SODIUM
     Dates: start: 20160608, end: 20160613
  17. COUMADINE [Concomitant]
     Active Substance: WARFARIN SODIUM
     Dates: start: 20160902, end: 20160930
  18. UVEDOSE [Concomitant]
     Active Substance: CHOLECALCIFEROL
     Indication: ANAEMIA
     Dates: start: 20140727
  19. FER MYLAN [Concomitant]
     Dates: start: 20160209, end: 20160307
  20. ARANESP [Concomitant]
     Active Substance: DARBEPOETIN ALFA
     Dates: start: 20160714, end: 20160811
  21. COUMADINE [Concomitant]
     Active Substance: WARFARIN SODIUM
     Dates: start: 20160330, end: 20160418
  22. COUMADINE [Concomitant]
     Active Substance: WARFARIN SODIUM
     Dates: start: 20160729, end: 20160810
  23. FER MYLAN [Concomitant]
     Dates: start: 20160115, end: 20160209
  24. FER MYLAN [Concomitant]
     Dates: start: 20160725, end: 20160811
  25. RENVELA [Concomitant]
     Active Substance: SEVELAMER CARBONATE
     Indication: HYPERPHOSPHATAEMIA
     Dates: start: 20150408, end: 20160307
  26. COUMADINE [Concomitant]
     Active Substance: WARFARIN SODIUM
     Dates: start: 20160810, end: 20160812
  27. PHOSPHOSORB [Concomitant]
     Active Substance: CALCIUM ACETATE
     Indication: HYPERPHOSPHATAEMIA
     Dates: start: 20141029, end: 20160613
  28. FER MYLAN [Concomitant]
     Dates: start: 20160307, end: 20160307
  29. CALCIPARINE [Concomitant]
     Active Substance: HEPARIN CALCIUM
     Indication: CARDIOVASCULAR DISORDER
     Dates: start: 20160523, end: 20160615
  30. PLAVIX [Concomitant]
     Active Substance: CLOPIDOGREL BISULFATE
     Indication: CARDIOVASCULAR DISORDER
     Dates: start: 20130522, end: 20160307
  31. ARANESP [Concomitant]
     Active Substance: DARBEPOETIN ALFA
     Indication: CHRONIC KIDNEY DISEASE
     Dates: start: 20160112, end: 20160209
  32. COUMADINE [Concomitant]
     Active Substance: WARFARIN SODIUM
     Dates: start: 20160812, end: 20160902
  33. FER MYLAN [Concomitant]
     Indication: ANAEMIA
     Dates: start: 20160811

REACTIONS (1)
  - Acute coronary syndrome [Fatal]

NARRATIVE: CASE EVENT DATE: 20161007
